FAERS Safety Report 23345309 (Version 1)
Quarter: 2023Q4

REPORT INFORMATION
  Report Type: Spontaneous
  Country: US (occurrence: US)
  Receive Date: 20231228
  Receipt Date: 20231228
  Transmission Date: 20240110
  Serious: No
  Sender: FDA-Public Use
  Company Number: US-OPELLA-2023OHG020440

PATIENT
  Age: 12 Year
  Sex: Male

DRUGS (1)
  1. GOLD BOND ULTIMATE PSORIASIS RELIEF CREAM [Suspect]
     Active Substance: SALICYLIC ACID
     Indication: Psoriasis

REACTIONS (4)
  - Condition aggravated [Unknown]
  - Emotional distress [Unknown]
  - Drug ineffective [Unknown]
  - Burning sensation [Unknown]
